FAERS Safety Report 4972850-4 (Version None)
Quarter: 2006Q2

REPORT INFORMATION
  Report Type: 
  Country: None (occurrence: None)
  Receive Date: 20060410
  Receipt Date: 20060329
  Transmission Date: 20061013
  Serious: Yes (Death, Hospitalization)
  Sender: FDA-Public Use
  Company Number: APP200600091

PATIENT
  Age: 80 Year
  Sex: Male
  Weight: 57.0171 kg

DRUGS (5)
  1. FLUOROURACIL INJ [Suspect]
     Indication: BILIARY NEOPLASM
     Dosage: 375 MG/M2, 1 IN 1,  INTRAVENOUS
     Route: 042
     Dates: start: 20060306, end: 20060310
  2. LEUCOVORIN CALCIUM [Suspect]
     Indication: BILIARY NEOPLASM
     Dosage: 25 MG (25 MG, 1 IN 1 D), INTRAVENOUS
     Route: 042
     Dates: start: 20060306, end: 20060310
  3. DOXAZOSIN [Concomitant]
  4. OXYCODONE [Concomitant]
  5. REGLAN [Concomitant]

REACTIONS (9)
  - ASTHENIA [None]
  - BLOOD SODIUM DECREASED [None]
  - DEHYDRATION [None]
  - DISEASE PROGRESSION [None]
  - GENERAL PHYSICAL HEALTH DETERIORATION [None]
  - MUCOSAL INFLAMMATION [None]
  - ORAL INTAKE REDUCED [None]
  - ORAL PAIN [None]
  - PHARYNGOLARYNGEAL PAIN [None]
